FAERS Safety Report 4476911-8 (Version None)
Quarter: 2004Q4

REPORT INFORMATION
  Report Type: 
  Country: None (occurrence: None)
  Receive Date: 20041012
  Receipt Date: 20041001
  Transmission Date: 20050328
  Serious: Yes (Other)
  Sender: FDA-Public Use
  Company Number: 163-20785-04100154

PATIENT

DRUGS (2)
  1. THALOMID [Suspect]
     Indication: GLIOBLASTOMA MULTIFORME
     Dosage: 200MG ORAL DAILY; TITRATE 100 TO 200 MG PER DAY EVERY 1-2 WEEKS UP TO 1200 MG/D EVERY 8 WEEKS
     Route: 048
  2. RADIATION THERAPY [Suspect]
     Indication: GLIOBLASTOMA MULTIFORME
     Dosage: TOTAL DOSE 60 GY OVER 6 WEEKS

REACTIONS (13)
  - ASTHENIA [None]
  - CONFUSIONAL STATE [None]
  - FATIGUE [None]
  - GRANULOCYTE COUNT DECREASED [None]
  - HAEMOGLOBIN ABNORMAL [None]
  - HEADACHE [None]
  - INFECTION [None]
  - LETHARGY [None]
  - MALAISE [None]
  - NEUTROPHIL COUNT ABNORMAL [None]
  - PERIPHERAL SENSORY NEUROPATHY [None]
  - SPEECH DISORDER [None]
  - WHITE BLOOD CELL COUNT ABNORMAL [None]
